FAERS Safety Report 16865885 (Version 1)
Quarter: 2019Q3

REPORT INFORMATION
  Report Type: Spontaneous
  Country: US (occurrence: US)
  Receive Date: 20190930
  Receipt Date: 20190930
  Transmission Date: 20191005
  Serious: No
  Sender: FDA-Public Use
  Company Number: US-ALLERGAN-1853086US

PATIENT
  Age: 18 Year
  Sex: Male

DRUGS (2)
  1. CARIPRAZINE HCL UNK [Suspect]
     Active Substance: CARIPRAZINE HYDROCHLORIDE
     Indication: MAJOR DEPRESSION
     Dosage: 0.5 MG, QD
     Route: 065
  2. CARIPRAZINE HCL UNK [Suspect]
     Active Substance: CARIPRAZINE HYDROCHLORIDE
     Dosage: 1.5 MG, QD
     Route: 065

REACTIONS (2)
  - Off label use [Unknown]
  - Akathisia [Recovered/Resolved]
